FAERS Safety Report 17868559 (Version 1)
Quarter: 2020Q2

REPORT INFORMATION
  Report Type: Report from Study
  Country: IT (occurrence: IT)
  Receive Date: 20200606
  Receipt Date: 20200606
  Transmission Date: 20200714
  Serious: Yes (Hospitalization)
  Sender: FDA-Public Use
  Company Number: IT-ACCORD-184063

PATIENT
  Age: 49 Year
  Sex: Female
  Weight: 80 kg

DRUGS (6)
  1. ROCALTROL [Concomitant]
     Active Substance: CALCITRIOL
     Indication: VITAMIN D DEFICIENCY
     Dosage: STRENGTH- 0.50 MCG
     Route: 048
  2. DUROGESIC [Concomitant]
     Active Substance: FENTANYL
     Indication: OVARIAN CANCER
     Dosage: STRENGTH-25 MICROGRAMS / HOUR
     Route: 062
  3. GEMCITABINE ACCORD [Suspect]
     Active Substance: GEMCITABINE HYDROCHLORIDE
     Indication: OVARIAN CANCER
     Dosage: STRENGTH- 1 G
     Route: 042
  4. MAG-02 [Concomitant]
     Indication: HYPOMAGNESAEMIA
     Route: 048
  5. EFFENTORA [Concomitant]
     Active Substance: FENTANYL CITRATE
     Indication: OVARIAN CANCER
     Dosage: STRENGTH-100 MICROGRAMS,BUCCAL TABLETS
     Route: 048
  6. POTASSIUM [Concomitant]
     Active Substance: POTASSIUM
     Indication: HYPOKALAEMIA
     Route: 048

REACTIONS (4)
  - Vomiting [Recovering/Resolving]
  - Asthenia [Recovering/Resolving]
  - Vertigo [Recovering/Resolving]
  - Nausea [Recovering/Resolving]

NARRATIVE: CASE EVENT DATE: 20200405
